FAERS Safety Report 22814495 (Version 4)
Quarter: 2023Q4

REPORT INFORMATION
  Report Type: Report from Study
  Country: US (occurrence: US)
  Receive Date: 20230811
  Receipt Date: 20231127
  Transmission Date: 20240109
  Serious: No
  Sender: FDA-Public Use
  Company Number: US-AGIOS-2308US03437

PATIENT
  Sex: Male

DRUGS (2)
  1. MITAPIVAT [Suspect]
     Active Substance: MITAPIVAT
     Indication: Haemolytic anaemia enzyme specific
     Dosage: 50 MILLIGRAM, QD
     Route: 048
     Dates: start: 20220528
  2. MITAPIVAT [Suspect]
     Active Substance: MITAPIVAT
     Dosage: 100 MILLIGRAM, QD
     Route: 048
     Dates: start: 20230528

REACTIONS (2)
  - Haemoglobin decreased [Unknown]
  - Product dose omission issue [Unknown]
